FAERS Safety Report 13924197 (Version 2)
Quarter: 2017Q3

REPORT INFORMATION
  Report Type: Spontaneous
  Country: US (occurrence: US)
  Receive Date: 20170831
  Receipt Date: 20170901
  Transmission Date: 20171127
  Serious: Yes (Life-Threatening, Other)
  Sender: FDA-Public Use
  Company Number: US-JNJFOC-20170824610

PATIENT
  Age: 19 Year
  Sex: Male

DRUGS (2)
  1. LOPERAMIDE HYDROCHLORIDE. [Suspect]
     Active Substance: LOPERAMIDE HYDROCHLORIDE
     Route: 065
  2. LOPERAMIDE HYDROCHLORIDE. [Suspect]
     Active Substance: LOPERAMIDE HYDROCHLORIDE
     Indication: DRUG USE DISORDER
     Route: 065

REACTIONS (8)
  - Tachycardia [Unknown]
  - Drug abuse [Unknown]
  - Cytopenia [Unknown]
  - Coma [Unknown]
  - Acidosis [Unknown]
  - Rhabdomyolysis [Unknown]
  - Coagulopathy [Unknown]
  - Hypotension [Unknown]
